FAERS Safety Report 10064176 (Version 1)
Quarter: 2014Q2

REPORT INFORMATION
  Report Type: Spontaneous
  Country: US (occurrence: None)
  Receive Date: 20140407
  Receipt Date: 20140407
  Transmission Date: 20141212
  Serious: Yes (Death)
  Sender: FDA-Public Use
  Company Number: None

PATIENT
  Age: 72 Year
  Sex: Female
  Weight: 103.42 kg

DRUGS (1)
  1. ESTRADIOL [Suspect]
     Indication: BREAST CANCER
     Dates: start: 20131206, end: 20140130

REACTIONS (2)
  - Fluid retention [None]
  - Mobility decreased [None]
